FAERS Safety Report 5805145-7 (Version None)
Quarter: 2008Q3

REPORT INFORMATION
  Report Type: 
  Country: None (occurrence: None)
  Receive Date: 20080709
  Receipt Date: 20080625
  Transmission Date: 20090109
  Serious: Yes (Hospitalization, Other)
  Sender: FDA-Public Use
  Company Number: IT-GENENTECH-263407

PATIENT
  Sex: Female

DRUGS (3)
  1. XOLAIR [Suspect]
     Indication: ASTHMA
     Dosage: 150 MG, UNK
     Route: 058
     Dates: start: 20080509
  2. STEROID INHALER (UNK INGREDIENTS) [Concomitant]
     Indication: ASTHMA
  3. LEUKOTRIENE ANTAGONIST [Concomitant]
     Indication: ASTHMA

REACTIONS (2)
  - BRONCHOSPASM [None]
  - LARYNGOSPASM [None]
